FAERS Safety Report 18555739 (Version 2)
Quarter: 2021Q1

REPORT INFORMATION
  Report Type: Spontaneous
  Country: US (occurrence: US)
  Receive Date: 20201127
  Receipt Date: 20210211
  Transmission Date: 20210419
  Serious: Yes (Other)
  Sender: FDA-Public Use
  Company Number: US-PFIZER INC-2020462249

PATIENT
  Age: 65 Year
  Sex: Male
  Weight: 136 kg

DRUGS (4)
  1. HEPARIN SODIUM. [Suspect]
     Active Substance: HEPARIN SODIUM
     Dosage: 3000 IU
     Route: 040
     Dates: start: 202011, end: 202011
  2. HEPARIN SODIUM. [Suspect]
     Active Substance: HEPARIN SODIUM
     Indication: COAGULOPATHY
     Dosage: 9000 IU (3 X WEEK)
     Route: 042
     Dates: start: 20201118, end: 20201118
  3. HECTOROL [Concomitant]
     Active Substance: DOXERCALCIFEROL
     Dosage: 7 UG
     Route: 040
  4. HEPARIN SODIUM. [Suspect]
     Active Substance: HEPARIN SODIUM
     Dosage: 6000 IU
     Route: 040
     Dates: start: 202011, end: 202011

REACTIONS (3)
  - Cough [Recovered/Resolved]
  - Dyspnoea [Recovered/Resolved]
  - Wheezing [Recovered/Resolved]

NARRATIVE: CASE EVENT DATE: 20201118
